FAERS Safety Report 15866518 (Version 3)
Quarter: 2019Q1

REPORT INFORMATION
  Report Type: Spontaneous
  Country: US (occurrence: US)
  Receive Date: 20190125
  Receipt Date: 20190315
  Transmission Date: 20190417
  Serious: No
  Sender: FDA-Public Use
  Company Number: US-AMGEN-USASP2019011001

PATIENT
  Age: 59 Year
  Sex: Female

DRUGS (1)
  1. NEULASTA [Suspect]
     Active Substance: PEGFILGRASTIM
     Indication: PRODUCT USED FOR UNKNOWN INDICATION
     Dosage: 6000 MICROGRAM
     Route: 065

REACTIONS (6)
  - Neutrophil count decreased [Not Recovered/Not Resolved]
  - Unintentional medical device removal [Unknown]
  - Drug dose omission by device [Unknown]
  - Asthenia [Unknown]
  - Body temperature increased [Unknown]
  - Device adhesion issue [Unknown]

NARRATIVE: CASE EVENT DATE: 201901
